FAERS Safety Report 8317185 (Version 5)
Quarter: 2013Q2

REPORT INFORMATION
  Report Type: Report from Study
  Country: DE (occurrence: DE)
  Receive Date: 20111230
  Receipt Date: 20130623
  Transmission Date: 20140414
  Serious: Yes (Other)
  Sender: FDA-Public Use
  Company Number: DE-US-EMD SERONO, INC.-7102896

PATIENT
  Sex: Female
  Weight: 58 kg

DRUGS (4)
  1. REBIF [Suspect]
     Indication: RELAPSING-REMITTING MULTIPLE SCLEROSIS
     Route: 058
     Dates: start: 20100719, end: 20100726
  2. REBIF [Suspect]
     Route: 058
     Dates: start: 20100727, end: 20100817
  3. REBIF [Suspect]
     Dates: start: 20100818, end: 20101210
  4. PARACETAMOL [Concomitant]
     Indication: PRODUCT USED FOR UNKNOWN INDICATION
     Route: 048
     Dates: start: 20100920, end: 20101210

REACTIONS (1)
  - Necrosis [Recovered/Resolved with Sequelae]
